FAERS Safety Report 13814044 (Version 1)
Quarter: 2017Q3

REPORT INFORMATION
  Report Type: Spontaneous
  Country: FR (occurrence: FR)
  Receive Date: 20170731
  Receipt Date: 20170731
  Transmission Date: 20171127
  Serious: Yes (Hospitalization)
  Sender: FDA-Public Use
  Company Number: FR-ACCORD-056680

PATIENT
  Age: 80 Year
  Sex: Female

DRUGS (13)
  1. BENDAMUSTINE ACCORD [Suspect]
     Active Substance: BENDAMUSTINE
     Indication: MANTLE CELL LYMPHOMA
     Dosage: 4 CYCLES
     Route: 042
     Dates: start: 201701, end: 20170517
  2. FLECAINE LP [Concomitant]
     Active Substance: FLECAINIDE
     Route: 048
  3. FOSAVANCE [Concomitant]
     Active Substance: ALENDRONATE SODIUM\CHOLECALCIFEROL
     Route: 048
  4. TENORMIN [Concomitant]
     Active Substance: ATENOLOL
  5. TEMESTA [Concomitant]
     Active Substance: LORAZEPAM
     Route: 048
  6. PENTACARINAT [Concomitant]
     Active Substance: PENTAMIDINE ISETHIONATE
  7. KARDEGIC [Concomitant]
     Active Substance: ASPIRIN LYSINE
     Dosage: STRENGTH: 160 MG, POWDER FOR ORAL SOLUTION IN SACHET
     Route: 048
  8. NOVORAPID [Concomitant]
     Active Substance: INSULIN ASPART
     Dosage: BEFORE MEALS
     Route: 058
  9. BACTRIM [Concomitant]
     Active Substance: SULFAMETHOXAZOLE\TRIMETHOPRIM
     Dosage: ONE TABLET EVERY MONDAY, WEDNESDAY AND FRIDAY
  10. LEVOTHYROX [Concomitant]
     Active Substance: LEVOTHYROXINE
     Dosage: STRENGTH: 150 MICROGRAMS CHEWABLE TABLET
     Route: 042
  11. ZELITREX [Concomitant]
     Active Substance: VALACYCLOVIR HYDROCHLORIDE
     Dosage: STRENGTH: 500 MG, COATED TABLET
  12. VENTOLINE [Concomitant]
     Active Substance: ALBUTEROL
     Dosage: BY RESPIRATORY ROUTE
  13. LANTUS [Concomitant]
     Active Substance: INSULIN GLARGINE

REACTIONS (2)
  - Toxic skin eruption [Recovered/Resolved]
  - Pruritus [Unknown]

NARRATIVE: CASE EVENT DATE: 20170406
